FAERS Safety Report 10197525 (Version 1)
Quarter: 2014Q2

REPORT INFORMATION
  Report Type: Spontaneous
  Country: US (occurrence: US)
  Receive Date: 20140527
  Receipt Date: 20140527
  Transmission Date: 20141212
  Serious: No
  Sender: FDA-Public Use
  Company Number: US-NOVEN-14US008939

PATIENT
  Age: 46 Year
  Sex: Female

DRUGS (2)
  1. MINIVELLE [Suspect]
     Indication: PRODUCT USED FOR UNKNOWN INDICATION
     Dosage: 0.05 MG/DAY, UNK
     Route: 062
     Dates: start: 201402
  2. MINIVELLE [Suspect]
     Dosage: 0.1 MG/DAY, UNK
     Route: 062
     Dates: start: 201401, end: 201402

REACTIONS (4)
  - Skin discolouration [Not Recovered/Not Resolved]
  - Erythema [Not Recovered/Not Resolved]
  - Vulvovaginal pruritus [Not Recovered/Not Resolved]
  - Oedema peripheral [Not Recovered/Not Resolved]
